FAERS Safety Report 10330716 (Version 2)
Quarter: 2014Q3

REPORT INFORMATION
  Report Type: Spontaneous
  Country: JP (occurrence: JP)
  Receive Date: 20140722
  Receipt Date: 20140909
  Transmission Date: 20150326
  Serious: Yes (Death)
  Sender: FDA-Public Use
  Company Number: JP-ROCHE-1438616

PATIENT
  Age: 57 Year
  Sex: Male
  Weight: 57 kg

DRUGS (4)
  1. XELODA [Suspect]
     Active Substance: CAPECITABINE
     Indication: COLON CANCER METASTATIC
     Dosage: 2 WEEKS ADMINISTRATION FOLLOWED BY 1 WEEK REST
     Route: 048
     Dates: start: 20140217, end: 20140520
  2. XELODA [Suspect]
     Active Substance: CAPECITABINE
     Route: 048
     Dates: start: 20140530, end: 20140607
  3. ELPLAT [Concomitant]
     Active Substance: OXALIPLATIN
     Indication: COLON CANCER METASTATIC
     Dosage: COMPLETED TREATMENT CYCLE NUMBER: 0
     Route: 041
     Dates: start: 20140530, end: 20140530
  4. AVASTIN [Suspect]
     Active Substance: BEVACIZUMAB
     Indication: COLON CANCER METASTATIC
     Route: 041
     Dates: start: 20140217, end: 20140530

REACTIONS (3)
  - Gastrointestinal perforation [Fatal]
  - Colon cancer metastatic [Fatal]
  - Diarrhoea [Unknown]

NARRATIVE: CASE EVENT DATE: 20140607
